FAERS Safety Report 11986717 (Version 1)
Quarter: 2016Q1

REPORT INFORMATION
  Report Type: Spontaneous
  Country: US (occurrence: None)
  Receive Date: 20160201
  Receipt Date: 20160201
  Transmission Date: 20160526
  Serious: No
  Sender: FDA-Public Use
  Company Number: None

PATIENT
  Age: 48 Year
  Sex: Female
  Weight: 95.71 kg

DRUGS (4)
  1. NEURONTIN [Concomitant]
     Active Substance: GABAPENTIN
  2. DESVENLAFAXINE 50 MG RANBAXY PHARMACEUTICAL [Suspect]
     Active Substance: DESVENLAFAXINE
     Indication: DEPRESSION
     Route: 048
     Dates: start: 20151205, end: 20160128
  3. FISH OIL [Concomitant]
     Active Substance: FISH OIL
  4. MULTIVITAMIN [Concomitant]
     Active Substance: VITAMINS

REACTIONS (7)
  - Night sweats [None]
  - Insomnia [None]
  - Crying [None]
  - Suicidal ideation [None]
  - Feeling abnormal [None]
  - Product substitution issue [None]
  - Hot flush [None]

NARRATIVE: CASE EVENT DATE: 20160128
